FAERS Safety Report 5615483-9 (Version None)
Quarter: 2008Q1

REPORT INFORMATION
  Report Type: 
  Country: None (occurrence: None)
  Receive Date: 20080204
  Receipt Date: 20080204
  Transmission Date: 20080703
  Serious: Yes (Hospitalization)
  Sender: FDA-Public Use
  Company Number: None

PATIENT
  Age: 66 Year
  Sex: Male
  Weight: 120.5 kg

DRUGS (2)
  1. SODIUM CHLORIDE 0.9% [Suspect]
     Indication: INTRAVENOUS CATHETER MANAGEMENT
     Dosage: FLUSH AS NEEDED IV
     Route: 042
     Dates: start: 20071231, end: 20080123
  2. HEPARIN LOCK-FLUSH [Suspect]
     Indication: INTRAVENOUS CATHETER MANAGEMENT
     Dosage: FLUSH AS NEEDED IV
     Route: 042
     Dates: start: 20071231, end: 20080123

REACTIONS (6)
  - BLOOD CULTURE POSITIVE [None]
  - HYPOTENSION [None]
  - PHARMACEUTICAL PRODUCT COMPLAINT [None]
  - SERRATIA INFECTION [None]
  - THERAPEUTIC PRODUCT CONTAMINATION [None]
  - VOMITING [None]
